FAERS Safety Report 4464708-4 (Version None)
Quarter: 2004Q4

REPORT INFORMATION
  Report Type: 
  Country: None (occurrence: None)
  Receive Date: 20041004
  Receipt Date: 20041004
  Transmission Date: 20050328
  Serious: Yes (Hospitalization)
  Sender: FDA-Public Use
  Company Number: None

PATIENT
  Sex: Female
  Weight: 77.1115 kg

DRUGS (1)
  1. CRESTOR [Suspect]
     Indication: BLOOD CHOLESTEROL INCREASED
     Dosage: 1 DAILY ORAL
     Route: 048
     Dates: start: 20040428, end: 20040626

REACTIONS (3)
  - GASTRITIS [None]
  - MYOCARDIAL INFARCTION [None]
  - OESOPHAGITIS [None]
